FAERS Safety Report 4376394-2 (Version None)
Quarter: 2004Q2

REPORT INFORMATION
  Report Type: 
  Country: None (occurrence: None)
  Receive Date: 20040610
  Receipt Date: 20040610
  Transmission Date: 20050107
  Serious: Yes (Hospitalization)
  Sender: FDA-Public Use
  Company Number: None

PATIENT
  Age: 80 Year
  Sex: Male
  Weight: 89.8122 kg

DRUGS (12)
  1. ASPIRIN [Suspect]
     Indication: CEREBROVASCULAR ACCIDENT PROPHYLAXIS
     Dosage: 325 MG DAILY ORAL
     Route: 048
  2. CITALOPRAM [Concomitant]
  3. CLOPIDOGREL BISULFATE [Concomitant]
  4. DIPHENHYDRAMINE HCL [Concomitant]
  5. DOCUSATE [Concomitant]
  6. FUROSEMIDE [Concomitant]
  7. LEVOTHYROXINE SODIUM [Concomitant]
  8. METOCLOPRAMIDE [Concomitant]
  9. OXYBUTYNIN [Concomitant]
  10. RANITIDINE [Concomitant]
  11. SIMVASTATIN [Concomitant]
  12. TERZOSIN [Concomitant]

REACTIONS (5)
  - ASTHENIA [None]
  - DIZZINESS [None]
  - DYSPNOEA [None]
  - HAEMATOCHEZIA [None]
  - SYNCOPE [None]
